FAERS Safety Report 18182710 (Version 1)
Quarter: 2020Q3

REPORT INFORMATION
  Report Type: Spontaneous
  Country: US (occurrence: US)
  Receive Date: 20200821
  Receipt Date: 20200821
  Transmission Date: 20201103
  Serious: Yes (Other)
  Sender: FDA-Public Use
  Company Number: US-PURDUE-USA-2020-0161997

PATIENT

DRUGS (1)
  1. OXYCONTIN [Suspect]
     Active Substance: OXYCODONE HYDROCHLORIDE
     Indication: PRODUCT USED FOR UNKNOWN INDICATION
     Dosage: UNK
     Route: 048

REACTIONS (7)
  - Major depression [Unknown]
  - Emotional distress [Unknown]
  - Suicidal behaviour [Unknown]
  - Suicidal ideation [Unknown]
  - Drug use disorder [Unknown]
  - Drug dependence [Unknown]
  - Mental disorder [Unknown]
